FAERS Safety Report 15568096 (Version 1)
Quarter: 2018Q4

REPORT INFORMATION
  Report Type: Spontaneous
  Country: FR (occurrence: FR)
  Receive Date: 20181030
  Receipt Date: 20181030
  Transmission Date: 20190205
  Serious: Yes (Other)
  Sender: FDA-Public Use
  Company Number: FR-PFIZER INC-2018427547

PATIENT
  Age: 3 Year
  Sex: Male
  Weight: 18.5 kg

DRUGS (4)
  1. VENTOLINE [SALBUTAMOL SULFATE] [Concomitant]
     Active Substance: ALBUTEROL SULFATE
  2. ADVIL [Suspect]
     Active Substance: IBUPROFEN
     Indication: PAIN
     Route: 048
     Dates: start: 20141108, end: 20141111
  3. FLIXOTIDE [Concomitant]
     Active Substance: FLUTICASONE PROPIONATE
  4. DOLIPRANE [Concomitant]
     Active Substance: ACETAMINOPHEN

REACTIONS (1)
  - Mastoiditis [Recovered/Resolved]

NARRATIVE: CASE EVENT DATE: 20141111
